FAERS Safety Report 12469690 (Version 2)
Quarter: 2016Q3

REPORT INFORMATION
  Report Type: Spontaneous
  Country: AT (occurrence: AT)
  Receive Date: 20160615
  Receipt Date: 20160713
  Transmission Date: 20161109
  Serious: Yes (Other)
  Sender: FDA-Public Use
  Company Number: AT-BRISTOL-MYERS SQUIBB COMPANY-BMS-2016-046195

PATIENT
  Age: 25 Year
  Sex: Female

DRUGS (18)
  1. SERTRALINE [Suspect]
     Active Substance: SERTRALINE HYDROCHLORIDE
     Dosage: 200 MG, TID
     Route: 048
     Dates: start: 20150424, end: 20150428
  2. HOVA [Concomitant]
     Active Substance: HOPS\VALERIAN
     Dosage: 2 DF, UNK
     Route: 065
     Dates: start: 20150428, end: 20150430
  3. HOVA [Concomitant]
     Active Substance: HOPS\VALERIAN
     Indication: PRODUCT USED FOR UNKNOWN INDICATION
     Dosage: 2 DF, UNK
     Route: 065
     Dates: start: 20150423, end: 20150423
  4. HOVA [Concomitant]
     Active Substance: HOPS\VALERIAN
     Dosage: 2 DF, UNK
     Route: 065
     Dates: start: 20150426, end: 20150426
  5. CIPRALEX [Concomitant]
     Active Substance: ESCITALOPRAM OXALATE
     Dosage: 15 MG, UNK
     Route: 065
     Dates: start: 20150508
  6. HOVA [Concomitant]
     Active Substance: HOPS\VALERIAN
     Dosage: 2 DF, UNK
     Route: 065
     Dates: start: 20150425, end: 20150425
  7. CIPRALEX [Concomitant]
     Active Substance: ESCITALOPRAM OXALATE
     Indication: PRODUCT USED FOR UNKNOWN INDICATION
     Dosage: 5 MG, UNK
     Route: 065
     Dates: start: 20150429, end: 20150430
  8. SERTRALINE [Suspect]
     Active Substance: SERTRALINE HYDROCHLORIDE
     Indication: PRODUCT USED FOR UNKNOWN INDICATION
     Dosage: UNK
     Route: 065
     Dates: end: 201504
  9. SERTRALINE [Suspect]
     Active Substance: SERTRALINE HYDROCHLORIDE
     Dosage: 150 MG, UNK
     Route: 048
     Dates: start: 201504, end: 20150423
  10. HOVA [Concomitant]
     Active Substance: HOPS\VALERIAN
     Dosage: 2 DF, UNK
     Route: 065
     Dates: start: 20150428, end: 20150430
  11. ABILIFY [Suspect]
     Active Substance: ARIPIPRAZOLE
     Indication: PRODUCT USED FOR UNKNOWN INDICATION
     Dosage: 5 MG, UNK
     Route: 065
     Dates: start: 20150424, end: 20150429
  12. TRITTICO [Suspect]
     Active Substance: TRAZODONE HYDROCHLORIDE
     Indication: PRODUCT USED FOR UNKNOWN INDICATION
     Dosage: 150 MG, UNK
     Route: 048
     Dates: start: 201504, end: 20150426
  13. IBUPROFEN. [Concomitant]
     Active Substance: IBUPROFEN
     Indication: PRODUCT USED FOR UNKNOWN INDICATION
     Dosage: 400 MG, UNK
     Route: 065
     Dates: start: 20150426, end: 20150429
  14. IBUPROFEN. [Concomitant]
     Active Substance: IBUPROFEN
     Dosage: 400 MG, UNK
     Route: 065
     Dates: start: 20150612, end: 20150613
  15. IBUPROFEN. [Concomitant]
     Active Substance: IBUPROFEN
     Dosage: 1200 MG, UNK
     Route: 065
     Dates: start: 20150508, end: 20150508
  16. CIPRALEX [Concomitant]
     Active Substance: ESCITALOPRAM OXALATE
     Dosage: 10 MG, UNK
     Route: 065
     Dates: start: 20150501, end: 20150507
  17. ABILIFY [Suspect]
     Active Substance: ARIPIPRAZOLE
     Dosage: 10 MG, UNK
     Route: 065
     Dates: start: 20150430, end: 20150430
  18. PRAXITEN [Concomitant]
     Active Substance: OXAZEPAM
     Indication: PRODUCT USED FOR UNKNOWN INDICATION
     Dosage: 1 DF= 7.5 TO 30 MG, UNK
     Route: 048
     Dates: start: 20150426, end: 20150503

REACTIONS (1)
  - Pancreatitis [Recovered/Resolved]

NARRATIVE: CASE EVENT DATE: 20150427
